FAERS Safety Report 7885765-9 (Version None)
Quarter: 2011Q4

REPORT INFORMATION
  Report Type: 
  Country: None (occurrence: None)
  Receive Date: 20111102
  Receipt Date: 20110628
  Transmission Date: 20120403
  Serious: No
  Sender: FDA-Public Use
  Company Number: US-AMGEN-USASP2011033099

PATIENT
  Age: 60 Year
  Sex: Female

DRUGS (1)
  1. ENBREL [Suspect]
     Indication: PSORIATIC ARTHROPATHY
     Dosage: 50 MG, QWK
     Dates: start: 20000101

REACTIONS (9)
  - FALL [None]
  - SINUSITIS [None]
  - EPISTAXIS [None]
  - DYSPNOEA [None]
  - TOOTH DISORDER [None]
  - JAW FRACTURE [None]
  - PSORIATIC ARTHROPATHY [None]
  - FACIAL BONES FRACTURE [None]
  - GINGIVAL RECESSION [None]
